FAERS Safety Report 6600250-X (Version None)
Quarter: 2010Q1

REPORT INFORMATION
  Report Type: 
  Country: None (occurrence: None)
  Receive Date: 20100217
  Receipt Date: 20100219
  Transmission Date: 20100710
  Serious: Yes (Death, Other)
  Sender: FDA-Public Use
  Company Number: 100211-0000181

PATIENT
  Age: 10 Year
  Sex: Female

DRUGS (3)
  1. L-ASPARAGINASE (ASPARAGINASE) [Suspect]
     Indication: T-CELL TYPE ACUTE LEUKAEMIA
  2. DEXAMETHASONE TAB [Suspect]
     Indication: CHEMOTHERAPY
  3. METHOTREXATE [Suspect]
     Indication: CHEMOTHERAPY

REACTIONS (12)
  - ACUTE LYMPHOCYTIC LEUKAEMIA [None]
  - APRAXIA [None]
  - EPISTAXIS [None]
  - FATIGUE [None]
  - FUNGAL INFECTION [None]
  - HAEMOGLOBIN DECREASED [None]
  - INTERLEUKIN LEVEL INCREASED [None]
  - MALIGNANT NEOPLASM PROGRESSION [None]
  - MENTAL STATUS CHANGES [None]
  - NASAL CONGESTION [None]
  - PERIORBITAL CELLULITIS [None]
  - SWELLING FACE [None]
